FAERS Safety Report 22053194 (Version 1)
Quarter: 2023Q1

REPORT INFORMATION
  Report Type: Spontaneous
  Country: JP (occurrence: JP)
  Receive Date: 20230302
  Receipt Date: 20230302
  Transmission Date: 20230417
  Serious: Yes (Death, Other)
  Sender: FDA-Public Use
  Company Number: JP-BRISTOL-MYERS SQUIBB COMPANY-2023-030229

PATIENT
  Age: 77 Year
  Sex: Male
  Weight: 39.2 kg

DRUGS (3)
  1. AZACITIDINE [Suspect]
     Active Substance: AZACITIDINE
     Indication: Myelodysplastic syndrome
     Dosage: FREQUENCY TEXT: 7 DAYS WITHIN THE FIRST 9 CALENDAR DAYS?10.7143 MILLIGRAM/SQ. METER
     Route: 058
     Dates: start: 20201109, end: 20211207
  2. VENETOCLAX [Suspect]
     Active Substance: VENETOCLAX
     Indication: Myelodysplastic syndrome
     Dosage: FREQUENCY TEXT: 14 DAYS ON, 14 DAYS OFF?28.5714 MILLIGRAM
     Route: 048
     Dates: start: 20201109, end: 20211017
  3. VENETOCLAX [Suspect]
     Active Substance: VENETOCLAX
     Dosage: FREQUENCY TEXT: 14 DAYS ON, 14 DAYS OFF?7.1429 MILLIGRAM
     Route: 048
     Dates: start: 20201229, end: 20211212

REACTIONS (1)
  - Death [Fatal]

NARRATIVE: CASE EVENT DATE: 20220310
